FAERS Safety Report 21653317 (Version 1)
Quarter: 2022Q4

REPORT INFORMATION
  Report Type: Spontaneous
  Country: US (occurrence: US)
  Receive Date: 20221128
  Receipt Date: 20221128
  Transmission Date: 20230113
  Serious: Yes (Death, Other)
  Sender: FDA-Public Use
  Company Number: US-STRIDES ARCOLAB LIMITED-2022SP015820

PATIENT
  Age: 34 Year
  Sex: Male

DRUGS (4)
  1. TACROLIMUS [Suspect]
     Active Substance: TACROLIMUS
     Indication: Liver transplant
     Dosage: UNK,IMMUNOSUPPRESSIVE THERAPY WAS INITIALLY WEANED
     Route: 065
  2. AZATHIOPRINE [Suspect]
     Active Substance: AZATHIOPRINE
     Indication: Liver transplant
     Dosage: UNK, IMMUNOSUPPRESSIVE THERAPY WAS INITIALLY WEANED
     Route: 065
  3. PREDNISOLONE [Suspect]
     Active Substance: PREDNISOLONE
     Indication: Liver transplant
     Dosage: UNK,IMMUNOSUPPRESSIVE THERAPY WAS INITIALLY WEANED
     Route: 065
  4. THYMOCYTE IMMUNE GLOBULIN NOS [Suspect]
     Active Substance: THYMOCYTE IMMUNE GLOBULIN NOS
     Indication: Acute graft versus host disease
     Dosage: UNK
     Route: 065

REACTIONS (8)
  - Multiple organ dysfunction syndrome [Fatal]
  - Systemic candida [Fatal]
  - Sepsis [Fatal]
  - Herpes simplex viraemia [Fatal]
  - Herpes simplex oesophagitis [Fatal]
  - Acute graft versus host disease [Unknown]
  - Acute graft versus host disease in skin [Unknown]
  - Acute graft versus host disease in intestine [Unknown]
